FAERS Safety Report 4874718-0 (Version None)
Quarter: 2006Q1

REPORT INFORMATION
  Report Type: 
  Country: None (occurrence: None)
  Receive Date: 20060106
  Receipt Date: 20050907
  Transmission Date: 20060701
  Serious: Yes (Hospitalization, Disabling)
  Sender: FDA-Public Use
  Company Number: US-MERCK-0509USA01077

PATIENT
  Age: 47 Year
  Sex: Male
  Weight: 101 kg

DRUGS (14)
  1. VIOXX [Suspect]
     Indication: ARTHRALGIA
     Route: 048
     Dates: start: 20010201, end: 20041001
  2. LIPITOR [Concomitant]
     Route: 065
     Dates: start: 20000307
  3. PRILOSEC [Concomitant]
     Route: 065
  4. ATENOLOL [Concomitant]
     Route: 065
     Dates: start: 19980101
  5. NITRO [Concomitant]
     Route: 065
  6. XANAX [Concomitant]
     Route: 065
     Dates: start: 20010416
  7. PREVACID [Concomitant]
     Route: 065
  8. ZANTAC [Concomitant]
     Route: 065
  9. VALIUM [Concomitant]
     Route: 065
  10. ASPIRIN [Concomitant]
     Route: 048
     Dates: start: 19980923, end: 20040408
  11. ASPIRIN [Concomitant]
     Route: 048
     Dates: start: 20040408
  12. NAPROSYN [Concomitant]
     Route: 065
     Dates: start: 19950901
  13. HYDROCODONE HYDROCHLORIDE [Concomitant]
     Route: 065
  14. OXYCODONE [Concomitant]
     Route: 065

REACTIONS (19)
  - ACUTE MYOCARDIAL INFARCTION [None]
  - ANGINA UNSTABLE [None]
  - ARTERIOSCLEROSIS CORONARY ARTERY [None]
  - ARTHROPATHY [None]
  - BLOOD CHOLESTEROL INCREASED [None]
  - CHEST PAIN [None]
  - CORONARY ARTERY DISEASE [None]
  - CORONARY ARTERY STENOSIS [None]
  - DIARRHOEA [None]
  - DRY SOCKET [None]
  - HAEMATOMA [None]
  - HEADACHE [None]
  - HYPOKALAEMIA [None]
  - JAW DISORDER [None]
  - LACERATION [None]
  - MUSCLE SPASMS [None]
  - SINUS BRADYCARDIA [None]
  - TOOTH EXTRACTION [None]
  - VISION BLURRED [None]
